FAERS Safety Report 5244152-2 (Version None)
Quarter: 2007Q1

REPORT INFORMATION
  Report Type: 
  Country: None (occurrence: None)
  Receive Date: 20070222
  Receipt Date: 20070215
  Transmission Date: 20070707
  Serious: Yes (Death, Hospitalization)
  Sender: FDA-Public Use
  Company Number: GB-ROCHE-482844

PATIENT
  Age: 65 Year
  Sex: Male

DRUGS (1)
  1. XENICAL [Suspect]
     Indication: WEIGHT CONTROL
     Route: 065
     Dates: start: 20060915

REACTIONS (2)
  - HYPOGLYCAEMIA [None]
  - RENAL FAILURE ACUTE [None]
